FAERS Safety Report 26048999 (Version 2)
Quarter: 2025Q4

REPORT INFORMATION
  Report Type: Spontaneous
  Country: TN (occurrence: TN)
  Receive Date: 20251115
  Receipt Date: 20251216
  Transmission Date: 20260117
  Serious: Yes (Other)
  Sender: ACCORD
  Company Number: TN-Accord-512963

PATIENT
  Age: 37 Year
  Sex: Female

DRUGS (3)
  1. HYDROXYCHLOROQUINE [Suspect]
     Active Substance: HYDROXYCHLOROQUINE
     Indication: Systemic lupus erythematosus
     Dosage: LONG-TERM USE
  2. PREDNISOLONE [Suspect]
     Active Substance: PREDNISOLONE
  3. LYSINE ACETYLSALICYLATE [Concomitant]
     Active Substance: ASPIRIN DL-LYSINE

REACTIONS (3)
  - Dilated cardiomyopathy [Recovered/Resolved]
  - Peripartum cardiomyopathy [Recovered/Resolved]
  - Cardiac failure [Recovered/Resolved]
